FAERS Safety Report 25435280 (Version 4)
Quarter: 2025Q4

REPORT INFORMATION
  Report Type: Report from Study
  Country: US (occurrence: US)
  Receive Date: 20250613
  Receipt Date: 20251029
  Transmission Date: 20260118
  Serious: No
  Sender: MALLINCKRODT
  Company Number: US-MALLINCKRODT-MNK202503560

PATIENT
  Sex: Female

DRUGS (4)
  1. CORTICOTROPIN [Suspect]
     Active Substance: CORTICOTROPIN
     Indication: Dermatomyositis
     Dosage: UNKNOWN
  2. CORTICOTROPIN [Suspect]
     Active Substance: CORTICOTROPIN
     Indication: Dermatomyositis
  3. NOVOCAIN [Concomitant]
     Active Substance: PROCAINE HYDROCHLORIDE
     Dosage: UNKNOWN
  4. PREDNISONE [Concomitant]
     Active Substance: PREDNISONE

REACTIONS (8)
  - Feeling abnormal [Unknown]
  - Pain in extremity [Unknown]
  - Ear disorder [Unknown]
  - Injection site pruritus [Recovered/Resolved]
  - Injection site mass [Unknown]
  - Injection site erythema [Unknown]
  - Depression [Unknown]
  - Injection site pain [Unknown]
